FAERS Safety Report 14651756 (Version 3)
Quarter: 2018Q2

REPORT INFORMATION
  Report Type: Spontaneous
  Country: US (occurrence: US)
  Receive Date: 20180317
  Receipt Date: 20180405
  Transmission Date: 20180711
  Serious: No
  Sender: FDA-Public Use
  Company Number: US-JNJFOC-20180304646

PATIENT
  Age: 49 Year
  Sex: Male
  Weight: 72.58 kg

DRUGS (1)
  1. RISPERDAL CONSTA [Suspect]
     Active Substance: RISPERIDONE
     Indication: SCHIZOAFFECTIVE DISORDER
     Route: 042
     Dates: start: 2011, end: 201803

REACTIONS (5)
  - Abnormal behaviour [Unknown]
  - Device breakage [Unknown]
  - Drug dose omission [Unknown]
  - Incorrect route of drug administration [Unknown]
  - Off label use [Unknown]

NARRATIVE: CASE EVENT DATE: 201803
